FAERS Safety Report 7404520-7 (Version None)
Quarter: 2011Q2

REPORT INFORMATION
  Report Type: 
  Country: None (occurrence: None)
  Receive Date: 20110410
  Receipt Date: 20110402
  Transmission Date: 20111010
  Serious: Yes (Hospitalization)
  Sender: FDA-Public Use
  Company Number: US-BRISTOL-MYERS SQUIBB COMPANY-15654429

PATIENT
  Age: 33 Year
  Sex: Male

DRUGS (1)
  1. IPILIMUMAB [Suspect]
     Indication: MALIGNANT MELANOMA
     Dosage: NO OF COURSES = 2
     Route: 042
     Dates: start: 20110228, end: 20110321

REACTIONS (4)
  - HAEMATEMESIS [None]
  - DEHYDRATION [None]
  - VOMITING [None]
  - NAUSEA [None]
